FAERS Safety Report 8432698-5 (Version None)
Quarter: 2012Q2

REPORT INFORMATION
  Report Type: 
  Country: None (occurrence: None)
  Receive Date: 20120607
  Receipt Date: 20120531
  Transmission Date: 20120825
  Serious: Yes (Other)
  Sender: FDA-Public Use
  Company Number: AUR-APL-2012-02493

PATIENT
  Age: 73 Year
  Sex: Female

DRUGS (6)
  1. LISINOPRIL AND HYDROCHLOROTHIAZIDE [Suspect]
     Indication: PRODUCT USED FOR UNKNOWN INDICATION
     Dosage: 10/12.5 MG, ORAL
     Route: 048
     Dates: start: 20070824, end: 20080501
  2. COREG [Suspect]
     Indication: PRODUCT USED FOR UNKNOWN INDICATION
     Dosage: (20 MG), ORAL
     Route: 048
     Dates: start: 20080101
  3. NIFEDIPINE [Suspect]
     Indication: PRODUCT USED FOR UNKNOWN INDICATION
     Dosage: (30 MG)
     Dates: start: 20080530
  4. TOPROL-XL [Suspect]
     Indication: PRODUCT USED FOR UNKNOWN INDICATION
     Dosage: 100 MG (50 MG, 2 IN 1 D),ORAL,  200 MG (100 MG,2 IN 1 D),ORAL
     Route: 048
  5. ATENOLOL [Suspect]
     Indication: PRODUCT USED FOR UNKNOWN INDICATION
     Dosage: (25 MG) ,ORAL
     Route: 048
     Dates: start: 20080501, end: 20080501
  6. METOPROLOL TARTRATE [Suspect]
     Indication: PRODUCT USED FOR UNKNOWN INDICATION
     Dosage: (50 MG),ORAL
     Route: 048
     Dates: start: 20070801, end: 20070801

REACTIONS (15)
  - HYPERTENSION [None]
  - DIZZINESS [None]
  - MUSCLE SPASMS [None]
  - MUSCULAR WEAKNESS [None]
  - EYE HAEMORRHAGE [None]
  - CONFUSIONAL STATE [None]
  - DRUG INEFFECTIVE [None]
  - HYPOAESTHESIA [None]
  - VASCULAR RUPTURE [None]
  - ASTHENIA [None]
  - FATIGUE [None]
  - PARAESTHESIA [None]
  - MALAISE [None]
  - CONSTIPATION [None]
  - ABDOMINAL DISCOMFORT [None]
